FAERS Safety Report 8571986-9 (Version None)
Quarter: 2012Q3

REPORT INFORMATION
  Report Type: 
  Country: None (occurrence: None)
  Receive Date: 20120806
  Receipt Date: 20120724
  Transmission Date: 20120928
  Serious: Yes (Other)
  Sender: FDA-Public Use
  Company Number: JP-UCBSA-062865

PATIENT
  Sex: Female

DRUGS (1)
  1. XYZAL [Suspect]
     Indication: PRURITUS
     Route: 048

REACTIONS (1)
  - ATRIAL FIBRILLATION [None]
